FAERS Safety Report 25765682 (Version 1)
Quarter: 2025Q3

REPORT INFORMATION
  Report Type: Spontaneous
  Country: US (occurrence: US)
  Receive Date: 20250905
  Receipt Date: 20250905
  Transmission Date: 20251021
  Serious: No
  Sender: AUROBINDO
  Company Number: US-AUROBINDO-AUR-APL-2025-026154

PATIENT
  Age: 61 Year
  Sex: Male

DRUGS (4)
  1. HYDROCHLOROTHIAZIDE [Suspect]
     Active Substance: HYDROCHLOROTHIAZIDE
     Indication: Blood pressure measurement
  2. LENVIMA [Concomitant]
     Active Substance: LENVATINIB
     Indication: Hepatocellular carcinoma
     Dosage: 12 MILLIGRAM, ONCE A DAY
     Route: 065
     Dates: start: 20250301, end: 20250414
  3. LENVIMA [Concomitant]
     Active Substance: LENVATINIB
     Route: 065
     Dates: start: 20250422
  4. LENVIMA [Concomitant]
     Active Substance: LENVATINIB
     Dosage: 8 MILLIGRAM, ONCE A DAY
     Route: 065
     Dates: start: 20250501

REACTIONS (2)
  - Dizziness [Unknown]
  - Vision blurred [Unknown]
